FAERS Safety Report 7602516-3 (Version None)
Quarter: 2011Q3

REPORT INFORMATION
  Report Type: 
  Country: None (occurrence: None)
  Receive Date: 20110707
  Receipt Date: 20110412
  Transmission Date: 20111222
  Serious: Yes (Hospitalization)
  Sender: FDA-Public Use
  Company Number: US-CYPR-2011-000012

PATIENT
  Sex: Male
  Weight: 82.5547 kg

DRUGS (4)
  1. ASPIRIN [Suspect]
     Indication: CORONARY ARTERY DISEASE
     Dosage: (81 MG QD ORAL)
     Route: 048
     Dates: start: 20100105
  2. CLOPIDOGREL OR PLACEBO 75 MG (BRISTOL-MYERS SQUIBB/SANOFI-AVENTIS) [Suspect]
     Indication: ANTIPLATELET THERAPY
     Dosage: (75 MG QD ORAL) ; (75 MG QD ORAL)
     Route: 048
     Dates: start: 20110106, end: 20110307
  3. CLOPIDOGREL OR PLACEBO 75 MG (BRISTOL-MYERS SQUIBB/SANOFI-AVENTIS) [Suspect]
     Indication: ANTIPLATELET THERAPY
     Dosage: (75 MG QD ORAL) ; (75 MG QD ORAL)
     Route: 048
     Dates: start: 20110309
  4. CYPHER STENT [Concomitant]

REACTIONS (1)
  - PERICARDIAL NEOPLASM [None]
